FAERS Safety Report 4954772-8 (Version None)
Quarter: 2006Q1

REPORT INFORMATION
  Report Type: 
  Country: None (occurrence: None)
  Receive Date: 20060322
  Receipt Date: 20060307
  Transmission Date: 20060701
  Serious: Yes (Life-Threatening, Hospitalization, Other)
  Sender: FDA-Public Use
  Company Number: TR200603002185

PATIENT
  Age: 73 Year
  Sex: Male

DRUGS (6)
  1. ZYPREXA [Suspect]
     Indication: PANIC DISORDER
     Dosage: SEE IMAGE
     Route: 048
     Dates: start: 20060302, end: 20060306
  2. SALBUTAMOL (SALBUTAMOL) [Concomitant]
  3. ACETYLCYSTEINE [Concomitant]
  4. REMERON [Concomitant]
  5. ALPRAZOLAM [Concomitant]
  6. BIPERIDEN (BIPERIDEN) [Concomitant]

REACTIONS (6)
  - AGITATION [None]
  - BLOOD CREATINE PHOSPHOKINASE INCREASED [None]
  - DYSPNOEA [None]
  - LOSS OF CONSCIOUSNESS [None]
  - NEUROLEPTIC MALIGNANT SYNDROME [None]
  - PYREXIA [None]
